FAERS Safety Report 7741127-6 (Version None)
Quarter: 2011Q3

REPORT INFORMATION
  Report Type: 
  Country: None (occurrence: None)
  Receive Date: 20110909
  Receipt Date: 20110826
  Transmission Date: 20111222
  Serious: No
  Sender: FDA-Public Use
  Company Number: US-B.I. PHARMACEUTICALS,INC./RIDGEFIELD-2011-BP-20921BP

PATIENT
  Age: 80 Year
  Sex: Female

DRUGS (11)
  1. PRADAXA [Suspect]
     Indication: ATRIAL FIBRILLATION
     Dosage: 300 MG
     Route: 048
     Dates: start: 20110602
  2. DOCUSATE [Concomitant]
     Indication: CONSTIPATION
  3. METRONIDAZOLE [Concomitant]
     Indication: ROSACEA
  4. SENNA [Concomitant]
     Indication: CONSTIPATION
  5. LEVOTHYROXINE SODIUM [Concomitant]
     Indication: HYPERTHYROIDISM
     Dosage: 100 MCG
  6. SERTRALINE HYDROCHLORIDE [Concomitant]
     Dosage: 100 MG
  7. SINGULAIR [Concomitant]
     Dosage: 10 MG
  8. TRIAMTERINE/HCTZ [Concomitant]
  9. ALBUTEROL SULFATE AUTOHALER [Concomitant]
     Indication: DYSPNOEA
  10. METRONIDAZOLE [Concomitant]
     Indication: ACNE
     Route: 061
  11. SIMVASTATIN [Concomitant]
     Indication: BLOOD CHOLESTEROL INCREASED
     Dosage: 20 MG

REACTIONS (2)
  - ACTIVATED PARTIAL THROMBOPLASTIN TIME PROLONGED [None]
  - CONTUSION [None]
